FAERS Safety Report 21832081 (Version 2)
Quarter: 2023Q2

REPORT INFORMATION
  Report Type: Report from Study
  Country: GB (occurrence: None)
  Receive Date: 20230106
  Receipt Date: 20230417
  Transmission Date: 20230722
  Serious: Yes (Life-Threatening, Other)
  Sender: FDA-Public Use
  Company Number: 2023A002056

PATIENT
  Age: 26603 Day
  Sex: Female

DRUGS (10)
  1. OLAPARIB [Suspect]
     Active Substance: OLAPARIB
     Indication: Neoplasm
     Dosage: 150 MG
     Route: 048
     Dates: start: 20220906, end: 20221003
  2. OLAPARIB [Suspect]
     Active Substance: OLAPARIB
     Indication: Neoplasm
     Dosage: 150 MG
     Route: 048
     Dates: start: 20221004, end: 20221020
  3. OLAPARIB [Suspect]
     Active Substance: OLAPARIB
     Indication: Neoplasm
     Dosage: 150 MG
     Route: 048
     Dates: start: 20221101, end: 20221128
  4. CERALASERTIB [Suspect]
     Active Substance: CERALASERTIB
     Indication: Neoplasm
     Dosage: 80 MG
     Route: 048
     Dates: start: 20220906, end: 20220919
  5. CERALASERTIB [Suspect]
     Active Substance: CERALASERTIB
     Indication: Neoplasm
     Dosage: 80 MG
     Route: 048
     Dates: start: 20221003, end: 20221016
  6. CERALASERTIB [Suspect]
     Active Substance: CERALASERTIB
     Indication: Neoplasm
     Dosage: 80 MG
     Route: 048
     Dates: start: 20221101, end: 20221112
  7. PREGABALIN [Concomitant]
     Active Substance: PREGABALIN
     Indication: Pain
     Route: 048
     Dates: start: 201906
  8. ENOXAPARIN [Concomitant]
     Active Substance: ENOXAPARIN
     Indication: Pulmonary embolism
     Route: 058
     Dates: start: 20220713
  9. MAGNESIUM GLYCEROPHOSPHATE [Concomitant]
     Active Substance: MAGNESIUM GLYCEROPHOSPHATE
     Indication: Blood magnesium decreased
     Route: 048
     Dates: start: 20220906
  10. APIXABAN [Concomitant]
     Active Substance: APIXABAN
     Indication: Pulmonary embolism
     Route: 048
     Dates: start: 20220912

REACTIONS (1)
  - Thrombocytopenia [Recovered/Resolved]

NARRATIVE: CASE EVENT DATE: 20221018
